FAERS Safety Report 6184521-X (Version None)
Quarter: 2009Q2

REPORT INFORMATION
  Report Type: 
  Country: None (occurrence: None)
  Receive Date: 20090508
  Receipt Date: 20090429
  Transmission Date: 20091009
  Serious: Yes (Hospitalization, Other)
  Sender: FDA-Public Use
  Company Number: SK-AVENTIS-200910732GDDC

PATIENT
  Age: 56 Year
  Sex: Female

DRUGS (8)
  1. ARAVA [Suspect]
     Indication: RHEUMATOID ARTHRITIS
     Route: 048
  2. COSOPT [Concomitant]
     Dosage: DOSE: 1 DROP EACH EYE
     Route: 047
  3. XALATAN [Concomitant]
     Dosage: DOSE: 1 DROP EACH EYE
     Route: 047
  4. MOVALIS [Concomitant]
     Indication: RHEUMATOID ARTHRITIS
     Route: 048
  5. PRENESSA [Concomitant]
     Route: 048
  6. ANOPYRIN [Concomitant]
     Route: 048
  7. IBALGIN [Concomitant]
     Indication: ANALGESIA
     Dosage: DOSE: UNK
     Route: 048
  8. SUMAMED [Concomitant]
     Dosage: DOSE: UNK
     Route: 048

REACTIONS (4)
  - BODY TEMPERATURE INCREASED [None]
  - COUGH [None]
  - LUNG INFILTRATION [None]
  - WEGENER'S GRANULOMATOSIS [None]
